FAERS Safety Report 19586470 (Version 1)
Quarter: 2021Q3

REPORT INFORMATION
  Report Type: Spontaneous
  Country: DE (occurrence: DE)
  Receive Date: 20210721
  Receipt Date: 20210721
  Transmission Date: 20211014
  Serious: Yes (Other)
  Sender: FDA-Public Use
  Company Number: DE-TEVA-2021-DE-1933245

PATIENT
  Age: 28 Year
  Sex: Male

DRUGS (13)
  1. OLANZAPIN [Suspect]
     Active Substance: OLANZAPINE
     Dosage: 10MILLIGRAM
     Dates: start: 20200824, end: 20200825
  2. RISPERIDON [Suspect]
     Active Substance: RISPERIDONE
     Dosage: 2MILLIGRAM
     Dates: start: 20200820, end: 20200820
  3. OLANZAPIN [Suspect]
     Active Substance: OLANZAPINE
     Dosage: 7.5MILLIGRAM
     Dates: start: 20200818, end: 20200823
  4. RISPERIDON [Suspect]
     Active Substance: RISPERIDONE
     Dosage: 3MILLIGRAM
     Dates: start: 20200801, end: 20200804
  5. RISPERIDON [Suspect]
     Active Substance: RISPERIDONE
     Dosage: FROM HERE ADR, OVERLAPPING SWITCH TO OLANZAPINE:UNIT DOSE:3MILLIGRAM
     Dates: start: 20200817, end: 20200819
  6. OLANZAPIN [Suspect]
     Active Substance: OLANZAPINE
     Dosage: 15MILLIGRAM
     Dates: start: 20200826, end: 20200831
  7. OLANZAPIN [Suspect]
     Active Substance: OLANZAPINE
     Dosage: 5MILLIGRAM
     Dates: start: 20200908
  8. RISPERIDON [Suspect]
     Active Substance: RISPERIDONE
     Dosage: 4MILLIGRAM
     Dates: start: 20200805, end: 20200810
  9. OLANZAPIN [Suspect]
     Active Substance: OLANZAPINE
     Dosage: 7.5MILLIGRAM
     Dates: start: 20200903, end: 20200907
  10. OLANZAPIN [Suspect]
     Active Substance: OLANZAPINE
     Dosage: 5MILLIGRAM
     Dates: start: 20200817, end: 20200817
  11. OLANZAPIN [Suspect]
     Active Substance: OLANZAPINE
     Dosage: 10MILLIGRAM
     Dates: start: 20200901, end: 20200902
  12. RISPERIDON [Suspect]
     Active Substance: RISPERIDONE
     Dosage: ADRS ERECTILE DYSFUNCTION AND ITCHING:UNIT DOSE:5MILLIGRAM
     Dates: start: 20200811, end: 20200816
  13. RISPERIDON [Suspect]
     Active Substance: RISPERIDONE
     Dosage: 2MILLIGRAM
     Dates: start: 20200729, end: 20200731

REACTIONS (7)
  - Restless legs syndrome [Recovering/Resolving]
  - Sleep disorder [Unknown]
  - Confusional state [Unknown]
  - Apathy [Unknown]
  - Pruritus [Unknown]
  - Erectile dysfunction [Unknown]
  - Musculoskeletal stiffness [Unknown]

NARRATIVE: CASE EVENT DATE: 20200813
